FAERS Safety Report 4504940-4 (Version None)
Quarter: 2004Q4

REPORT INFORMATION
  Report Type: 
  Country: None (occurrence: None)
  Receive Date: 20041119
  Receipt Date: 20041110
  Transmission Date: 20050328
  Serious: Yes (Hospitalization, Other)
  Sender: FDA-Public Use
  Company Number: GB-JNJFOC-20041102834

PATIENT
  Sex: Male
  Weight: 85 kg

DRUGS (14)
  1. REMICADE [Suspect]
     Indication: RHEUMATOID ARTHRITIS
     Route: 042
  2. METHOTREXATE [Concomitant]
  3. HYPROMELLOSE [Concomitant]
  4. DIGOXIN [Concomitant]
  5. ASPIRIN [Concomitant]
  6. LOSARTAN [Concomitant]
  7. CO-AMILOFRUSE [Concomitant]
  8. CO-AMILOFRUSE [Concomitant]
  9. FINASTERIDE [Concomitant]
  10. B12 [Concomitant]
  11. CO-CODAMOL [Concomitant]
  12. CO-CODAMOL [Concomitant]
  13. TAMSULOSIN [Concomitant]
  14. BECONASE [Concomitant]

REACTIONS (2)
  - ANGINA PECTORIS [None]
  - ATRIAL FIBRILLATION [None]
